FAERS Safety Report 13417161 (Version 1)
Quarter: 2017Q2

REPORT INFORMATION
  Report Type: Spontaneous
  Country: US (occurrence: US)
  Receive Date: 20170407
  Receipt Date: 20170407
  Transmission Date: 20170830
  Serious: No
  Sender: FDA-Public Use
  Company Number: US-GE HEALTHCARE LIFE SCIENCES-2017CSU000695

PATIENT
  Age: 9 Day
  Sex: Female

DRUGS (1)
  1. DRYTEC (TECHNETIUM TC99M GENERATOR) [Suspect]
     Active Substance: TECHNETIUM TC-99M SODIUM PERTECHNETATE
     Indication: CONGENITAL HYPOTHYROIDISM
     Dosage: 1.5 MCI, SINGLE
     Route: 058

REACTIONS (2)
  - Off label use [Recovered/Resolved]
  - Discomfort [Recovered/Resolved]
